FAERS Safety Report 15677047 (Version 2)
Quarter: 2018Q4

REPORT INFORMATION
  Report Type: Spontaneous
  Country: US (occurrence: US)
  Receive Date: 20181130
  Receipt Date: 20181218
  Transmission Date: 20190205
  Serious: Yes (Other)
  Sender: FDA-Public Use
  Company Number: US-009507513-1811USA012794

PATIENT
  Sex: Male

DRUGS (1)
  1. KEYTRUDA [Suspect]
     Active Substance: PEMBROLIZUMAB
     Indication: LIP AND/OR ORAL CAVITY CANCER

REACTIONS (2)
  - Malignant neoplasm progression [Not Recovered/Not Resolved]
  - Drug ineffective [Not Recovered/Not Resolved]
